FAERS Safety Report 8783211 (Version 2)
Quarter: 2012Q4

REPORT INFORMATION
  Report Type: Report from Study
  Country: IT (occurrence: IT)
  Receive Date: 20120913
  Receipt Date: 20121025
  Transmission Date: 20130627
  Serious: Yes (Other)
  Sender: FDA-Public Use
  Company Number: IT-CELGENEUS-083-21880-12090251

PATIENT
  Age: 68 Year

DRUGS (15)
  1. REVLIMID [Suspect]
     Indication: NON-SMALL CELL LUNG CANCER NOS
     Dosage: 25 Milligram
     Route: 048
     Dates: start: 20110215, end: 20110222
  2. PACLITAXEL [Suspect]
     Indication: NON-SMALL CELL LUNG CANCER NOS
     Route: 065
     Dates: start: 20110215
  3. CIPRALEX [Concomitant]
     Indication: DEPRESSION
     Route: 065
     Dates: start: 20100803
  4. TEMESTA [Concomitant]
     Indication: INSOMNIA
     Route: 065
  5. AGOPTON [Concomitant]
     Indication: PROPHYLAXIS
     Route: 065
  6. MOVICOL [Concomitant]
     Indication: CONSTIPATION
     Route: 065
     Dates: start: 20110203, end: 20110511
  7. NOVALGINA [Concomitant]
     Indication: PAIN
     Route: 065
     Dates: start: 20110207, end: 20110307
  8. ESTROFEM [Concomitant]
     Indication: HORMONE REPLACEMENT THERAPY
     Route: 065
     Dates: start: 20110215
  9. CARDIOASPIRINE [Concomitant]
     Indication: PREMEDICATION
     Route: 065
     Dates: start: 20110215, end: 20110630
  10. ZANTIC [Concomitant]
     Indication: PREMEDICATION
     Route: 065
     Dates: start: 20110215, end: 20110215
  11. ZANTIC [Concomitant]
     Dates: start: 20110308, end: 20110308
  12. TAVEGYL [Concomitant]
     Indication: PREMEDICATION
     Route: 065
     Dates: start: 20110215, end: 20110215
  13. TAVEGYL [Concomitant]
     Route: 065
     Dates: start: 20110308, end: 20110308
  14. DEXAMETHASONE [Concomitant]
     Indication: PREMEDICATION
     Route: 065
     Dates: start: 20110215, end: 20110215
  15. DEXAMETHASONE [Concomitant]
     Route: 065
     Dates: start: 20110308, end: 20110308

REACTIONS (7)
  - Hepatic enzyme increased [Recovered/Resolved]
  - Bone pain [Recovered/Resolved]
  - Constipation [Recovered/Resolved]
  - Cough [Recovered/Resolved]
  - Haematoma [Recovered/Resolved]
  - Epistaxis [Recovered/Resolved]
  - Catheter site pain [Recovered/Resolved]
